FAERS Safety Report 7013874-5 (Version None)
Quarter: 2010Q3

REPORT INFORMATION
  Report Type: 
  Country: None (occurrence: None)
  Receive Date: 20100924
  Receipt Date: 20100917
  Transmission Date: 20110219
  Serious: Yes (Other)
  Sender: FDA-Public Use
  Company Number: US-B.I. PHARMACEUTICALS,INC./RIDGEFIELD-2010-BP-10799PF

PATIENT
  Sex: Female
  Weight: 44 kg

DRUGS (3)
  1. SPIRIVA [Suspect]
     Indication: BRONCHITIS CHRONIC
     Route: 055
     Dates: start: 20100101
  2. PROTONIX [Suspect]
     Dosage: 40 MG
     Route: 048
  3. VITAMIN D SUPPLEMENTS [Suspect]
     Indication: VITAMIN D DEFICIENCY
     Dates: start: 20100101

REACTIONS (7)
  - ABDOMINAL DISCOMFORT [None]
  - ABDOMINAL PAIN UPPER [None]
  - DYSPEPSIA [None]
  - GASTRITIS [None]
  - GASTROOESOPHAGEAL REFLUX DISEASE [None]
  - VISION BLURRED [None]
  - VITAMIN D DEFICIENCY [None]
